FAERS Safety Report 17419298 (Version 2)
Quarter: 2020Q1

REPORT INFORMATION
  Report Type: Spontaneous
  Country: DK (occurrence: DK)
  Receive Date: 20200214
  Receipt Date: 20200320
  Transmission Date: 20200409
  Serious: Yes (Other)
  Sender: FDA-Public Use
  Company Number: DK-ASTRAZENECA-2019SE19724

PATIENT
  Age: 36 Year
  Sex: Male
  Weight: 95 kg

DRUGS (22)
  1. RISPERDAL [Suspect]
     Active Substance: RISPERIDONE
     Indication: SCHIZOPHRENIA
     Route: 065
     Dates: start: 2003, end: 2006
  2. RISPERDAL [Suspect]
     Active Substance: RISPERIDONE
     Indication: SCHIZOPHRENIA
     Dosage: UNKNOWN
     Route: 065
  3. CLOZAPIN ^HEXAL^ [Suspect]
     Active Substance: CLOZAPINE
     Indication: PSYCHOTIC DISORDER
     Dosage: 250 MILLIGRAMS
     Route: 048
     Dates: start: 20170215, end: 20170914
  4. SEROQUEL [Suspect]
     Active Substance: QUETIAPINE FUMARATE
     Indication: MENTAL DISORDER
     Dosage: 500.0MG UNKNOWN
     Route: 048
     Dates: start: 20050310
  5. CLOZAPIN ^HEXAL^ [Suspect]
     Active Substance: CLOZAPINE
     Indication: SCHIZOPHRENIA
     Dosage: 200 MILLIGRAMS
     Route: 048
     Dates: start: 20170914
  6. CLOZAPIN ^HEXAL^ [Suspect]
     Active Substance: CLOZAPINE
     Indication: SCHIZOPHRENIA
     Dosage: LEPONEX
     Route: 048
  7. CLOZAPIN ^HEXAL^ [Suspect]
     Active Substance: CLOZAPINE
     Indication: PSYCHOTIC DISORDER
     Dosage: LEPONEX
     Route: 048
  8. RISPERDAL [Suspect]
     Active Substance: RISPERIDONE
     Indication: MANIA
     Dosage: UNKNOWN
     Route: 065
  9. DELEPSINE [Suspect]
     Active Substance: VALPROATE SODIUM
     Indication: MANIA
     Route: 065
     Dates: start: 20150202, end: 20170614
  10. DELEPSINE [Suspect]
     Active Substance: VALPROATE SODIUM
     Indication: MOOD SWINGS
     Route: 065
     Dates: start: 20150202, end: 20170614
  11. ESCITALOPRAM [Concomitant]
     Active Substance: ESCITALOPRAM OXALATE
     Indication: PRODUCT USED FOR UNKNOWN INDICATION
  12. RISPERDAL [Suspect]
     Active Substance: RISPERIDONE
     Indication: MANIA
     Route: 065
     Dates: start: 2003, end: 2006
  13. ZYPREXA [Suspect]
     Active Substance: OLANZAPINE
     Indication: PRODUCT USED FOR UNKNOWN INDICATION
     Route: 065
  14. DELEPSINE [Suspect]
     Active Substance: VALPROATE SODIUM
     Indication: MOOD SWINGS
     Dosage: UNK UNK, BID (2,5 ML MORNING AND 4 ML EVENING)
     Route: 048
     Dates: start: 20150717
  15. CLOZAPIN ^HEXAL^ [Suspect]
     Active Substance: CLOZAPINE
     Indication: SCHIZOPHRENIA
     Dosage: 150-350 MG, UNK
     Route: 048
  16. CLOZAPIN ^HEXAL^ [Suspect]
     Active Substance: CLOZAPINE
     Indication: PSYCHOTIC DISORDER
     Dosage: 150-350 MG, UNK
     Route: 048
  17. ZELDOX [Suspect]
     Active Substance: ZIPRASIDONE
     Indication: MENTAL DISORDER
     Dosage: 20.0MG UNKNOWN
     Route: 048
  18. CLOZAPIN ^HEXAL^ [Suspect]
     Active Substance: CLOZAPINE
     Indication: SCHIZOPHRENIA
     Dosage: 250 MILLIGRAMS
     Route: 048
     Dates: start: 20170215, end: 20170914
  19. DELEPSINE [Suspect]
     Active Substance: VALPROATE SODIUM
     Indication: MANIA
     Dosage: UNK UNK, BID
     Route: 048
  20. CLOZAPIN ^HEXAL^ [Suspect]
     Active Substance: CLOZAPINE
     Indication: PSYCHOTIC DISORDER
     Dosage: 200 MILLIGRAMS
     Route: 048
     Dates: start: 20170914
  21. DELEPSINE [Suspect]
     Active Substance: VALPROATE SODIUM
     Indication: MANIA
     Dosage: UNK UNK, BID (2,5 ML MORNING AND 4 ML EVENING)
     Route: 048
     Dates: start: 20150717
  22. DELEPSINE [Suspect]
     Active Substance: VALPROATE SODIUM
     Indication: MOOD SWINGS
     Dosage: UNK UNK, BID
     Route: 048

REACTIONS (8)
  - Infertility [Not Recovered/Not Resolved]
  - Hormone level abnormal [Not Recovered/Not Resolved]
  - Erectile dysfunction [Not Recovered/Not Resolved]
  - Testicular atrophy [Not Recovered/Not Resolved]
  - Hypogonadism male [Not Recovered/Not Resolved]
  - Sperm concentration decreased [Not Recovered/Not Resolved]
  - Hyperprolactinaemia [Not Recovered/Not Resolved]
  - Feminisation acquired [Not Recovered/Not Resolved]

NARRATIVE: CASE EVENT DATE: 20160717
